FAERS Safety Report 14256602 (Version 1)
Quarter: 2017Q4

REPORT INFORMATION
  Report Type: Spontaneous
  Country: CN (occurrence: CN)
  Receive Date: 20171206
  Receipt Date: 20171206
  Transmission Date: 20180321
  Serious: Yes (Life-Threatening)
  Sender: FDA-Public Use
  Company Number: CN-FRESENIUS KABI-FK201710440

PATIENT
  Age: 56 Year
  Sex: Female

DRUGS (8)
  1. WATER-SOLUBLE VITAMIN FOR INJECTION [Suspect]
     Active Substance: VITAMINS
     Indication: NUTRITIONAL SUPPLEMENTATION
     Route: 041
     Dates: start: 20170930, end: 20171001
  2. FAT-SOLUBLE VITAMIN FOR INJECTION (II) [Suspect]
     Active Substance: VITAMINS
     Indication: NUTRITIONAL SUPPLEMENTATION
     Route: 041
     Dates: start: 20170930, end: 20171001
  3. NOVAMIN (AMINO ACIDS NOS) [Suspect]
     Active Substance: AMINO ACIDS
     Indication: NUTRITIONAL SUPPLEMENTATION
     Route: 041
     Dates: start: 20170930, end: 20171001
  4. INSULIN INJECTION [Suspect]
     Active Substance: INSULIN NOS
     Indication: BLOOD GLUCOSE FLUCTUATION
     Route: 041
     Dates: start: 20170930, end: 20171001
  5. GLUCOSE INJECTION [Concomitant]
     Active Substance: DEXTROSE
     Route: 041
     Dates: start: 20170930, end: 20171001
  6. LIPOVENOES MCT 20% [Suspect]
     Active Substance: EGG PHOSPHOLIPIDS\GLYCERIN\MEDIUM-CHAIN TRIGLYCERIDES\SOYBEAN OIL
     Indication: NUTRITIONAL SUPPLEMENTATION
     Route: 041
     Dates: start: 20170930, end: 20171001
  7. POTASSIUM CHLORIDE. [Concomitant]
     Active Substance: POTASSIUM CHLORIDE
     Indication: MINERAL SUPPLEMENTATION
     Route: 041
     Dates: start: 20170930, end: 20171001
  8. GLUCOSE INJECTION [Concomitant]
     Active Substance: DEXTROSE
     Indication: DRUG THERAPY
     Route: 041
     Dates: start: 20170930, end: 20171001

REACTIONS (2)
  - Anaphylactic shock [Recovering/Resolving]
  - Cyanosis [None]

NARRATIVE: CASE EVENT DATE: 20171001
